FAERS Safety Report 7544184-5 (Version None)
Quarter: 2011Q2

REPORT INFORMATION
  Report Type: 
  Country: None (occurrence: None)
  Receive Date: 20110613
  Receipt Date: 20061115
  Transmission Date: 20111010
  Serious: Yes (Hospitalization)
  Sender: FDA-Public Use
  Company Number: PHNR2005AU01015

PATIENT
  Sex: Male

DRUGS (2)
  1. CLOZAPINE [Suspect]
     Indication: SCHIZOPHRENIA
     Dosage: 0 - 300 MG/DAY
     Dates: start: 20020517, end: 20050601
  2. INTERFERON [Interacting]
     Dates: start: 20050610

REACTIONS (11)
  - BLOOD CREATINE PHOSPHOKINASE INCREASED [None]
  - LEUKOPENIA [None]
  - BLOOD CALCIUM DECREASED [None]
  - RED BLOOD CELL COUNT DECREASED [None]
  - HYPERSPLENISM [None]
  - RED CELL DISTRIBUTION WIDTH INCREASED [None]
  - NEUTROPENIA [None]
  - HEPATITIS C [None]
  - PLATELET COUNT DECREASED [None]
  - HAEMOGLOBIN DECREASED [None]
  - HAEMATOCRIT DECREASED [None]
